FAERS Safety Report 13611113 (Version 1)
Quarter: 2017Q2

REPORT INFORMATION
  Report Type: Spontaneous
  Country: US (occurrence: US)
  Receive Date: 20170602
  Receipt Date: 20170602
  Transmission Date: 20170830
  Serious: Yes (Other)
  Sender: FDA-Public Use
  Company Number: None

PATIENT

DRUGS (3)
  1. GATIFLOXACIN. [Suspect]
     Active Substance: GATIFLOXACIN
  2. PREDNISOLONE ACETATE. [Suspect]
     Active Substance: PREDNISOLONE ACETATE
     Indication: CATARACT
     Route: 047
  3. NEPAFENAC [Suspect]
     Active Substance: NEPAFENAC

REACTIONS (5)
  - Vitreous floaters [None]
  - Condition aggravated [None]
  - Product packaging issue [None]
  - Liquid product physical issue [None]
  - Product physical issue [None]

NARRATIVE: CASE EVENT DATE: 20170601
